APPROVED DRUG PRODUCT: COMBIGAN
Active Ingredient: BRIMONIDINE TARTRATE; TIMOLOL MALEATE
Strength: 0.2%;EQ 0.5% BASE
Dosage Form/Route: SOLUTION/DROPS;OPHTHALMIC
Application: N021398 | Product #001 | TE Code: AB
Applicant: ABBVIE INC
Approved: Oct 30, 2007 | RLD: Yes | RS: Yes | Type: RX